FAERS Safety Report 7705029-3 (Version None)
Quarter: 2011Q3

REPORT INFORMATION
  Report Type: 
  Country: None (occurrence: None)
  Receive Date: 20110823
  Receipt Date: 20110818
  Transmission Date: 20111222
  Serious: Yes (Other)
  Sender: FDA-Public Use
  Company Number: GB-PFIZER INC-2011175660

PATIENT
  Age: 64 Year
  Sex: Female

DRUGS (6)
  1. GEMTUZUMAB OZOGAMICIN [Suspect]
     Indication: ACUTE MYELOID LEUKAEMIA
     Dosage: 6 MG UNIT DOSE AT UNKNOWN FREQUENCY
     Dates: start: 20110718, end: 20110729
  2. GEMTUZUMAB OZOGAMICIN [Suspect]
     Indication: MYELODYSPLASTIC SYNDROME
  3. ATRACURIUM BESYLATE [Suspect]
     Indication: ACUTE MYELOID LEUKAEMIA
     Dosage: UNK
     Dates: start: 20110715, end: 20110718
  4. ATRACURIUM BESYLATE [Suspect]
     Indication: MYELODYSPLASTIC SYNDROME
     Dosage: UNK
     Dates: start: 20110804
  5. TRISENOX [Suspect]
     Indication: MYELODYSPLASTIC SYNDROME
  6. TRISENOX [Suspect]
     Indication: ACUTE MYELOID LEUKAEMIA
     Dosage: UNK
     Dates: start: 20110718, end: 20110729

REACTIONS (1)
  - GAMMA-GLUTAMYLTRANSFERASE INCREASED [None]
